FAERS Safety Report 7514714-8 (Version None)
Quarter: 2011Q2

REPORT INFORMATION
  Report Type: 
  Country: None (occurrence: None)
  Receive Date: 20110601
  Receipt Date: 20110419
  Transmission Date: 20111010
  Serious: Yes (Hospitalization, Other)
  Sender: FDA-Public Use
  Company Number: US-BAYER-201039961NA

PATIENT
  Age: 27 Year
  Sex: Female
  Weight: 63.492 kg

DRUGS (10)
  1. BUPROPION HYDROCHLORIDE [Concomitant]
     Dosage: 300 MG, UNK
  2. HYDROCODONE BITARTRATE AND ACETAMINOPHEN [Concomitant]
     Dosage: 7.5 - 150 MG
  3. TRAMADOL HCL [Concomitant]
     Dosage: 37.5 - 325 MG
  4. CIPROFLOXACIN [Concomitant]
     Dosage: 250 MG, UNK
  5. PHENAZOPYRIDINE HCL TAB [Concomitant]
     Dosage: 200 MG, UNK
  6. NITROFURANT MACRO [Concomitant]
     Dosage: 100 MG, UNK
  7. YAZ [Suspect]
     Indication: PRODUCT USED FOR UNKNOWN INDICATION
     Dosage: UNK UNK, QD
     Route: 048
     Dates: start: 20030101, end: 20090101
  8. YASMIN [Suspect]
     Indication: PRODUCT USED FOR UNKNOWN INDICATION
     Dosage: UNK UNK, QD
     Route: 048
     Dates: start: 20030101, end: 20090101
  9. CLONAZEPAM [Concomitant]
     Dosage: 0.5 MG, UNK
  10. DROSPIRENONE AND ETHINYL ESTRADIOL [Suspect]
     Indication: PRODUCT USED FOR UNKNOWN INDICATION
     Dosage: UNK UNK, QD
     Route: 048
     Dates: start: 20030101, end: 20090101

REACTIONS (3)
  - CHOLECYSTITIS ACUTE [None]
  - CHOLECYSTITIS CHRONIC [None]
  - GALLBLADDER DISORDER [None]
